FAERS Safety Report 16131482 (Version 1)
Quarter: 2019Q1

REPORT INFORMATION
  Report Type: Spontaneous
  Country: DE (occurrence: DE)
  Receive Date: 20190328
  Receipt Date: 20190328
  Transmission Date: 20190418
  Serious: Yes (Other)
  Sender: FDA-Public Use
  Company Number: DE-MYLANLABS-2019M1028441

PATIENT
  Sex: Female

DRUGS (1)
  1. CARBADURA 400 MG RETARD, RETARDTABLETTEN [Suspect]
     Active Substance: CARBAMAZEPINE
     Indication: PRODUCT USED FOR UNKNOWN INDICATION
     Dosage: UNK

REACTIONS (2)
  - Hyponatraemia [Unknown]
  - Condition aggravated [Recovered/Resolved]
